FAERS Safety Report 16813321 (Version 4)
Quarter: 2020Q2

REPORT INFORMATION
  Report Type: Spontaneous
  Country: US (occurrence: US)
  Receive Date: 20190916
  Receipt Date: 20200515
  Transmission Date: 20200713
  Serious: Yes (Other)
  Sender: FDA-Public Use
  Company Number: US-BEH-2019106946

PATIENT
  Age: 32 Year
  Sex: Male

DRUGS (8)
  1. HUMATE-P [Suspect]
     Active Substance: HUMAN COAGULATION FACTOR VIII/VON WILLEBRAND FACTOR COMPLEX
     Indication: VON WILLEBRAND^S DISEASE
     Dosage: 3000 INTERNATIONAL UNIT, TIW
     Route: 042
     Dates: start: 20180102
  2. HUMATE-P [Suspect]
     Active Substance: HUMAN COAGULATION FACTOR VIII/VON WILLEBRAND FACTOR COMPLEX
     Indication: HAEMORRHAGE
     Dosage: 4000 INTERNATIONAL UNIT, TIW
     Route: 042
     Dates: start: 20180103
  3. HUMATE-P [Suspect]
     Active Substance: HUMAN COAGULATION FACTOR VIII/VON WILLEBRAND FACTOR COMPLEX
     Indication: HAEMORRHAGE
     Dosage: 4000 INTERNATIONAL UNIT, TIW
     Route: 042
     Dates: start: 20180103
  4. HUMATE-P [Suspect]
     Active Substance: HUMAN COAGULATION FACTOR VIII/VON WILLEBRAND FACTOR COMPLEX
     Dosage: 4000 INTERNATIONAL UNIT DAILY/ 3600-4400, PRN
     Route: 042
  5. HUMATE-P [Suspect]
     Active Substance: HUMAN COAGULATION FACTOR VIII/VON WILLEBRAND FACTOR COMPLEX
     Indication: VON WILLEBRAND^S DISEASE
     Dosage: 3000 INTERNATIONAL UNIT, TIW
     Route: 042
     Dates: start: 20180102
  6. HUMATE-P [Suspect]
     Active Substance: HUMAN COAGULATION FACTOR VIII/VON WILLEBRAND FACTOR COMPLEX
     Dosage: 6000 INTERNATIONAL UNIT /5400-6600, PRN/ EVERY 12 HOURS FOR 2 TIMES
     Route: 042
  7. HUMATE-P [Suspect]
     Active Substance: HUMAN COAGULATION FACTOR VIII/VON WILLEBRAND FACTOR COMPLEX
     Dosage: 4000 INTERNATIONAL UNIT DAILY/ 3600-4400, PRN
     Route: 042
  8. HUMATE-P [Suspect]
     Active Substance: HUMAN COAGULATION FACTOR VIII/VON WILLEBRAND FACTOR COMPLEX
     Dosage: 6000 INTERNATIONAL UNIT /5400-6600, PRN/ EVERY 12 HOURS FOR 2 TIMES
     Route: 042

REACTIONS (7)
  - Treatment noncompliance [Not Recovered/Not Resolved]
  - Product supply issue [Not Recovered/Not Resolved]
  - Haemarthrosis [Not Recovered/Not Resolved]
  - Haemarthrosis [Unknown]
  - Epistaxis [Unknown]
  - Epistaxis [Not Recovered/Not Resolved]
  - No adverse event [Not Recovered/Not Resolved]

NARRATIVE: CASE EVENT DATE: 201909
